FAERS Safety Report 25749647 (Version 1)
Quarter: 2025Q3

REPORT INFORMATION
  Report Type: Other
  Country: JP (occurrence: JP)
  Receive Date: 20250902
  Receipt Date: 20250902
  Transmission Date: 20251021
  Serious: Yes (Death, Hospitalization, Other)
  Sender: COREPHARMA LLC
  Company Number: JP-CorePharma LLC-2183640

PATIENT
  Age: 50 Year
  Sex: Male

DRUGS (6)
  1. DEXAMETHASONE [Suspect]
     Active Substance: DEXAMETHASONE
     Indication: Angiocentric lymphoma
  2. DEXAMETHASONE [Suspect]
     Active Substance: DEXAMETHASONE
     Indication: Lymphoma
  3. METHOTREXATE [Suspect]
     Active Substance: METHOTREXATE
  4. ETOPOSIDE [Suspect]
     Active Substance: ETOPOSIDE
  5. ASPARAGINASE [Suspect]
     Active Substance: ASPARAGINASE
  6. IFOSFAMIDE [Suspect]
     Active Substance: IFOSFAMIDE

REACTIONS (4)
  - Acute respiratory distress syndrome [Fatal]
  - Hypercapnia [Fatal]
  - Aspergillus infection [Fatal]
  - Tracheobronchitis [Fatal]
